FAERS Safety Report 8712056 (Version 5)
Quarter: 2017Q2

REPORT INFORMATION
  Report Type: Report from Study
  Country: JP (occurrence: JP)
  Receive Date: 20120807
  Receipt Date: 20170509
  Transmission Date: 20170830
  Serious: Yes (Hospitalization)
  Sender: FDA-Public Use
  Company Number: PHHY2008JP11862

PATIENT
  Age: 58 Year
  Sex: Male
  Weight: 63 kg

DRUGS (46)
  1. CERTICAN [Suspect]
     Active Substance: EVEROLIMUS
     Indication: HEART TRANSPLANT
     Dosage: 1.5 MG, QD
     Route: 048
     Dates: start: 20060907, end: 20061031
  2. CERTICAN [Suspect]
     Active Substance: EVEROLIMUS
     Dosage: 7 MG, QD
     Route: 048
     Dates: start: 20070927, end: 20081105
  3. CERTICAN [Suspect]
     Active Substance: EVEROLIMUS
     Dosage: 4.5 MG, QD
     Route: 048
     Dates: start: 20081109, end: 20090615
  4. CERTICAN [Suspect]
     Active Substance: EVEROLIMUS
     Dosage: 4 MG, QD
     Route: 048
     Dates: start: 20090616, end: 20090618
  5. CERTICAN [Suspect]
     Active Substance: EVEROLIMUS
     Dosage: 0.75 MG, QD
     Route: 048
     Dates: start: 20141126, end: 20150622
  6. TACROLIMUS. [Suspect]
     Active Substance: TACROLIMUS
     Dosage: 5 MG, UNK
     Route: 048
     Dates: start: 20070608, end: 20070810
  7. TACROLIMUS. [Suspect]
     Active Substance: TACROLIMUS
     Dosage: 3 MG, UNK
     Route: 048
     Dates: start: 20080606, end: 20080619
  8. TACROLIMUS. [Suspect]
     Active Substance: TACROLIMUS
     Dosage: 2.75 MG, UNK
     Route: 048
     Dates: start: 20080620, end: 20080627
  9. TACROLIMUS. [Suspect]
     Active Substance: TACROLIMUS
     Dosage: 2.5 MG, UNK
     Route: 048
     Dates: start: 20080628, end: 20080708
  10. CAPTOPRIL. [Concomitant]
     Active Substance: CAPTOPRIL
     Indication: HYPERTENSION
     Dosage: 37.5 MG, UNK
     Route: 048
     Dates: start: 20061101
  11. HERBESSOR R [Concomitant]
     Dosage: 200 MG, UNK
     Route: 065
     Dates: start: 20110929
  12. CERTICAN [Suspect]
     Active Substance: EVEROLIMUS
     Dosage: 2.25 MG, QD
     Route: 048
     Dates: start: 20100209, end: 20100319
  13. CERTICAN [Suspect]
     Active Substance: EVEROLIMUS
     Dosage: 2.5 MG, QD
     Route: 048
     Dates: start: 20100416, end: 20100427
  14. CERTICAN [Suspect]
     Active Substance: EVEROLIMUS
     Dosage: 2.75 MG, QD
     Route: 048
     Dates: start: 20100428, end: 20100621
  15. CERTICAN [Suspect]
     Active Substance: EVEROLIMUS
     Dosage: 3.25 MG, QD
     Route: 048
     Dates: start: 20100906, end: 20100922
  16. CERTICAN [Suspect]
     Active Substance: EVEROLIMUS
     Dosage: 2.5 MG, QD
     Route: 048
     Dates: start: 20110127, end: 20110418
  17. TACROLIMUS. [Suspect]
     Active Substance: TACROLIMUS
     Dosage: 4 MG, UNK
     Route: 048
     Dates: start: 20061212, end: 20070112
  18. TACROLIMUS. [Suspect]
     Active Substance: TACROLIMUS
     Dosage: 2.75 MG, UNK
     Route: 048
     Dates: start: 20080709, end: 20080814
  19. CERTICAN [Suspect]
     Active Substance: EVEROLIMUS
     Dosage: 3.5 MG, QD
     Route: 048
     Dates: start: 20090619, end: 20090828
  20. CERTICAN [Suspect]
     Active Substance: EVEROLIMUS
     Dosage: 2 MG, QD
     Route: 048
     Dates: start: 20091003, end: 20100208
  21. CERTICAN [Suspect]
     Active Substance: EVEROLIMUS
     Dosage: 1.25 MG, QD
     Route: 048
     Dates: start: 20111201, end: 20120823
  22. TACROLIMUS. [Suspect]
     Active Substance: TACROLIMUS
     Dosage: 4.5 MG, UNK
     Route: 048
     Dates: start: 20070811, end: 20070929
  23. PREDNISOLONE. [Concomitant]
     Active Substance: PREDNISOLONE
     Indication: HEART TRANSPLANT
     Dosage: 1.25 MG, UNK
     Route: 048
     Dates: start: 20061101, end: 20070502
  24. CERTICAN [Suspect]
     Active Substance: EVEROLIMUS
     Dosage: 1 MG, QD
     Route: 048
     Dates: start: 20070303, end: 20070711
  25. CERTICAN [Suspect]
     Active Substance: EVEROLIMUS
     Dosage: 3.25 MG, QD
     Route: 048
     Dates: start: 20090929, end: 20091003
  26. CERTICAN [Suspect]
     Active Substance: EVEROLIMUS
     Dosage: 2 MG, QD
     Route: 048
     Dates: start: 20100320, end: 20100415
  27. CERTICAN [Suspect]
     Active Substance: EVEROLIMUS
     Dosage: 3 MG, QD
     Route: 048
     Dates: start: 20100720, end: 20100905
  28. CERTICAN [Suspect]
     Active Substance: EVEROLIMUS
     Dosage: 1.25 MG, QD
     Route: 048
     Dates: start: 20061101, end: 20070302
  29. CERTICAN [Suspect]
     Active Substance: EVEROLIMUS
     Dosage: 3.5 MG, QD
     Route: 048
     Dates: start: 20090829, end: 20090928
  30. CERTICAN [Suspect]
     Active Substance: EVEROLIMUS
     Dosage: 1.5 MG, QD
     Route: 048
     Dates: start: 20120824
  31. TACROLIMUS. [Suspect]
     Active Substance: TACROLIMUS
     Dosage: 4.5 MG, UNK
     Route: 048
     Dates: start: 20070113, end: 20070607
  32. TACROLIMUS. [Suspect]
     Active Substance: TACROLIMUS
     Dosage: 4.25 MG, UNK
     Route: 048
     Dates: start: 20070930
  33. CERTICAN [Suspect]
     Active Substance: EVEROLIMUS
     Dosage: 2.5 MG, QD
     Route: 048
     Dates: start: 20100622, end: 20100719
  34. CERTICAN [Suspect]
     Active Substance: EVEROLIMUS
     Dosage: 3 MG, QD
     Route: 048
     Dates: start: 20100923, end: 20101213
  35. CERTICAN [Suspect]
     Active Substance: EVEROLIMUS
     Dosage: 0.5 MG, QD
     Route: 048
     Dates: start: 20150623
  36. LEVEMIR [Concomitant]
     Active Substance: INSULIN DETEMIR
     Indication: HYPERLIPIDAEMIA
     Dosage: 2 IU, QD
     Route: 058
     Dates: start: 20070422
  37. CERTICAN [Suspect]
     Active Substance: EVEROLIMUS
     Dosage: 3 MG, QD
     Route: 048
     Dates: start: 20101214, end: 20110126
  38. PRAVASTATIN SODIUM. [Concomitant]
     Active Substance: PRAVASTATIN SODIUM
     Indication: HYPERLIPIDAEMIA
     Dosage: 20 MG, QD
     Route: 048
     Dates: start: 20061101, end: 20100920
  39. PRAVASTATIN SODIUM. [Concomitant]
     Active Substance: PRAVASTATIN SODIUM
     Dosage: 10 MG, QD
     Route: 048
     Dates: start: 20100921
  40. PREDONINE [Concomitant]
     Active Substance: PREDNISOLONE
     Indication: HEART TRANSPLANT
     Dosage: 5 MG, QD
     Route: 048
     Dates: start: 20080606
  41. CERTICAN [Suspect]
     Active Substance: EVEROLIMUS
     Dosage: 6.75 MG, QD
     Route: 048
     Dates: start: 20070712, end: 20080905
  42. CERTICAN [Suspect]
     Active Substance: EVEROLIMUS
     Dosage: 2.25 MG, QD
     Route: 048
     Dates: start: 20110419
  43. TACROLIMUS. [Suspect]
     Active Substance: TACROLIMUS
     Indication: HEART TRANSPLANT
     Dosage: 3.5 MG, UNK
     Route: 048
     Dates: start: 20061101, end: 20061211
  44. MYCOPHENOLATE MOFETIL. [Concomitant]
     Active Substance: MYCOPHENOLATE MOFETIL
     Indication: HEART TRANSPLANT
     Dosage: UNK
     Route: 048
  45. PREDNISOLONE. [Concomitant]
     Active Substance: PREDNISOLONE
     Dosage: 5 MG, UNK
     Route: 048
     Dates: start: 20110929
  46. HERBESSOR R [Concomitant]
     Indication: HYPERTENSION
     Dosage: 400 MG, UNK
     Route: 048
     Dates: start: 20061101

REACTIONS (12)
  - Colon cancer [Recovered/Resolved]
  - Abdominal pain [Unknown]
  - Glucose tolerance impaired [Recovered/Resolved]
  - Oedema peripheral [Recovering/Resolving]
  - Metastases to lymph nodes [Recovered/Resolved]
  - Peritonitis [Recovered/Resolved]
  - Stomatitis [Recovering/Resolving]
  - Lymphoedema [Recovering/Resolving]
  - Troponin I increased [Recovering/Resolving]
  - Metastases to liver [Recovered/Resolved]
  - Large intestine perforation [Unknown]
  - Oedema [Recovering/Resolving]

NARRATIVE: CASE EVENT DATE: 200809
